FAERS Safety Report 14538653 (Version 8)
Quarter: 2020Q4

REPORT INFORMATION
  Report Type: Other
  Country: BR (occurrence: BR)
  Receive Date: 20180216
  Receipt Date: 20201103
  Transmission Date: 20210113
  Serious: Yes (Life-Threatening, Other)
  Sender: FDA-Public Use
  Company Number: BR-ROCHE-2071387

PATIENT
  Age: 17 Year
  Sex: Male
  Weight: 58 kg

DRUGS (5)
  1. XOLAIR [Suspect]
     Active Substance: OMALIZUMAB
     Route: 058
     Dates: start: 20190401
  2. XOLAIR [Suspect]
     Active Substance: OMALIZUMAB
     Route: 058
     Dates: start: 20180108, end: 202002
  3. XOLAIR [Suspect]
     Active Substance: OMALIZUMAB
     Route: 058
  4. XOLAIR [Suspect]
     Active Substance: OMALIZUMAB
     Indication: URTICARIA
     Route: 058
     Dates: start: 20180118
  5. XOLAIR [Suspect]
     Active Substance: OMALIZUMAB
     Route: 058
     Dates: start: 201802

REACTIONS (18)
  - Urticaria thermal [Not Recovered/Not Resolved]
  - Feeling hot [Recovering/Resolving]
  - Skin burning sensation [Unknown]
  - Anger [Unknown]
  - Insomnia [Not Recovered/Not Resolved]
  - Cold urticaria [Unknown]
  - Fear [Not Recovered/Not Resolved]
  - Body height decreased [Unknown]
  - Urticaria [Unknown]
  - Hypersomnia [Not Recovered/Not Resolved]
  - Pigmentation disorder [Not Recovered/Not Resolved]
  - Mental disorder [Not Recovered/Not Resolved]
  - Depression [Unknown]
  - Hypersensitivity [Unknown]
  - Nervousness [Unknown]
  - Pruritus [Not Recovered/Not Resolved]
  - Drug ineffective [Unknown]
  - Feeling abnormal [Unknown]

NARRATIVE: CASE EVENT DATE: 201802
